FAERS Safety Report 15630130 (Version 2)
Quarter: 2018Q4

REPORT INFORMATION
  Report Type: Spontaneous
  Country: US (occurrence: US)
  Receive Date: 20181118
  Receipt Date: 20181209
  Transmission Date: 20190205
  Serious: Yes (Other)
  Sender: FDA-Public Use
  Company Number: US-JNJFOC-20181100268

PATIENT
  Age: 80 Year
  Sex: Male

DRUGS (1)
  1. ERLEADA [Suspect]
     Active Substance: APALUTAMIDE
     Indication: PRODUCT USED FOR UNKNOWN INDICATION
     Route: 048
     Dates: start: 20180804, end: 201811

REACTIONS (6)
  - Dysphagia [Recovering/Resolving]
  - Skin fissures [Recovering/Resolving]
  - Skin ulcer [Recovering/Resolving]
  - Gait disturbance [Recovering/Resolving]
  - Rash [Recovering/Resolving]
  - Chapped lips [Recovering/Resolving]

NARRATIVE: CASE EVENT DATE: 201809
